FAERS Safety Report 12724268 (Version 1)
Quarter: 2016Q3

REPORT INFORMATION
  Report Type: Spontaneous
  Country: US (occurrence: US)
  Receive Date: 20160908
  Receipt Date: 20160908
  Transmission Date: 20161109
  Serious: No
  Sender: FDA-Public Use
  Company Number: US-BEH-2016073261

PATIENT
  Age: 57 Year
  Sex: Female
  Weight: 65.76 kg

DRUGS (52)
  1. HIZENTRA [Suspect]
     Active Substance: HUMAN IMMUNOGLOBULIN G
     Indication: IMMUNE SYSTEM DISORDER
     Dosage: UNK
     Route: 058
  2. LIDOCAINE. [Concomitant]
     Active Substance: LIDOCAINE
  3. FLECTOR                            /00372302/ [Concomitant]
     Active Substance: DICLOFENAC SODIUM
  4. BIOTIN [Concomitant]
     Active Substance: BIOTIN
  5. HIZENTRA [Suspect]
     Active Substance: HUMAN IMMUNOGLOBULIN G
     Indication: IMMUNODEFICIENCY COMMON VARIABLE
     Dosage: 15 G, QW
     Route: 058
     Dates: start: 20160316
  6. DIPHENHYDRAMINE. [Concomitant]
     Active Substance: DIPHENHYDRAMINE
  7. GAVISCON                           /00237601/ [Concomitant]
     Active Substance: ALUMINUM HYDROXIDE\MAGNESIUM CARBONATE
  8. POTASSIUM [Concomitant]
     Active Substance: POTASSIUM
  9. ZYFLO [Concomitant]
     Active Substance: ZILEUTON
  10. SYMBICORT [Concomitant]
     Active Substance: BUDESONIDE\FORMOTEROL FUMARATE DIHYDRATE
  11. AVELOX [Concomitant]
     Active Substance: MOXIFLOXACIN HYDROCHLORIDE
  12. NASACORT [Concomitant]
     Active Substance: TRIAMCINOLONE ACETONIDE
  13. MUPIROCIN. [Concomitant]
     Active Substance: MUPIROCIN
  14. HIZENTRA [Suspect]
     Active Substance: HUMAN IMMUNOGLOBULIN G
     Dosage: UNK
     Route: 058
  15. MIDODRINE [Concomitant]
     Active Substance: MIDODRINE
  16. ACETAMINOPHEN. [Concomitant]
     Active Substance: ACETAMINOPHEN
  17. EPIPEN [Concomitant]
     Active Substance: EPINEPHRINE
  18. LEVALBUTEROL. [Concomitant]
     Active Substance: LEVALBUTEROL
  19. PLAQUENIL                          /00072602/ [Concomitant]
     Active Substance: HYDROXYCHLOROQUINE DIPHOSPHATE
  20. LEVSIN [Concomitant]
     Active Substance: HYOSCYAMINE SULFATE
  21. QVAR [Concomitant]
     Active Substance: BECLOMETHASONE DIPROPIONATE
  22. VITAMIN B12 [Concomitant]
     Active Substance: CYANOCOBALAMIN
  23. DAILY MULTIVITAMIN [Concomitant]
     Active Substance: VITAMINS
  24. CLONAZEPAM. [Concomitant]
     Active Substance: CLONAZEPAM
  25. BACLOFEN. [Concomitant]
     Active Substance: BACLOFEN
  26. COENZYME Q10 [Concomitant]
     Active Substance: UBIDECARENONE
  27. RABEPRAZOLE [Concomitant]
     Active Substance: RABEPRAZOLE
  28. PREMARIN [Concomitant]
     Active Substance: ESTROGENS, CONJUGATED
  29. RESVERATROL [Concomitant]
     Active Substance: RESVERATROL
  30. ZYRTEC [Concomitant]
     Active Substance: CETIRIZINE HYDROCHLORIDE
  31. SINGULAIR [Concomitant]
     Active Substance: MONTELUKAST SODIUM
  32. CELEBREX [Concomitant]
     Active Substance: CELECOXIB
  33. ZOFRAN [Concomitant]
     Active Substance: ONDANSETRON HYDROCHLORIDE
  34. LEXAPRO [Concomitant]
     Active Substance: ESCITALOPRAM OXALATE
  35. PROAIR HFA [Concomitant]
     Active Substance: ALBUTEROL SULFATE
  36. VITAMIN B COMPLEX [Concomitant]
     Active Substance: CYANOCOBALAMIN\DEXPANTHENOL\NIACINAMIDE\PYRIDOXINE HYDROCHLORIDE\RIBOFLAVIN 5^-PHOSPHATE SODIUM\THIAMINE HYDROCHLORIDE\VITAMIN B COMPLEX
  37. GLUCOSAMINE + CHONDROITIN          /01430901/ [Concomitant]
  38. FLORASTOR [Concomitant]
     Active Substance: SACCHAROMYCES CEREVISIAE
  39. HIZENTRA [Suspect]
     Active Substance: HUMAN IMMUNOGLOBULIN G
     Dosage: UNK
     Route: 058
  40. MEDROL [Concomitant]
     Active Substance: METHYLPREDNISOLONE
  41. AMILORIDE [Concomitant]
     Active Substance: AMILORIDE
  42. PROBIOTICS NOS [Concomitant]
     Active Substance: PROBIOTICS NOS
  43. MUCINEX [Concomitant]
     Active Substance: GUAIFENESIN
  44. PREDNISONE. [Concomitant]
     Active Substance: PREDNISONE
  45. NEURONTIN [Concomitant]
     Active Substance: GABAPENTIN
  46. VITAMIN D3 [Concomitant]
     Active Substance: CHOLECALCIFEROL
  47. ZITHROMAX [Concomitant]
     Active Substance: AZITHROMYCIN DIHYDRATE
  48. ZEGERID                            /00661201/ [Concomitant]
     Active Substance: OMEPRAZOLE
  49. CHLORTHALIDONE. [Concomitant]
     Active Substance: CHLORTHALIDONE
  50. HIZENTRA [Suspect]
     Active Substance: HUMAN IMMUNOGLOBULIN G
     Dosage: 15 G, QW
     Route: 058
     Dates: start: 20160901
  51. HYDROCODONE BITARTRATE AND ACETAMINOPHEN [Concomitant]
     Active Substance: ACETAMINOPHEN\HYDROCODONE BITARTRATE
  52. OMEGA-3 MARINE TRIGLYCERIDES [Concomitant]
     Active Substance: FISH OIL

REACTIONS (2)
  - Urticaria [Unknown]
  - Rash papular [Unknown]

NARRATIVE: CASE EVENT DATE: 20160902
